FAERS Safety Report 7198839-5 (Version None)
Quarter: 2010Q4

REPORT INFORMATION
  Report Type: 
  Country: None (occurrence: None)
  Receive Date: 20101227
  Receipt Date: 20101217
  Transmission Date: 20110411
  Serious: Yes (Other)
  Sender: FDA-Public Use
  Company Number: JP-ABBOTT-10P-087-0669634-00

PATIENT
  Sex: Male
  Weight: 62 kg

DRUGS (14)
  1. HUMIRA [Suspect]
     Indication: PSORIASIS
     Route: 058
     Dates: start: 20100623, end: 20100623
  2. HUMIRA [Suspect]
     Dates: start: 20100707, end: 20100818
  3. HUMIRA [Suspect]
     Dates: start: 20100915
  4. ISOSORBIDE DINITRATE [Concomitant]
     Indication: ANGINA PECTORIS
     Route: 048
  5. ENALAPRIL MALEATE [Concomitant]
     Indication: HYPERTENSION
     Route: 048
  6. WARFARIN POTASSIUM [Concomitant]
     Indication: PRODUCT USED FOR UNKNOWN INDICATION
     Route: 048
  7. NICARDIPINE HYDROCHLORIDE [Concomitant]
     Indication: PRODUCT USED FOR UNKNOWN INDICATION
     Route: 048
  8. PRAZOSIN HYDROCHLORIDE [Concomitant]
     Indication: HYPERTENSION
     Route: 048
  9. LOXOPROFEN SODIUM [Concomitant]
     Indication: PRODUCT USED FOR UNKNOWN INDICATION
     Route: 048
  10. REBAMIPIDE [Concomitant]
     Indication: PRODUCT USED FOR UNKNOWN INDICATION
  11. DIFLUPREDNATE [Concomitant]
     Indication: PSORIASIS
     Route: 062
  12. CALCIPOTRIOL [Concomitant]
     Indication: PSORIASIS
  13. OLOPATADINE HYDROCHLORIDE [Concomitant]
     Indication: PSORIASIS
     Route: 048
     Dates: end: 20100804
  14. ISONIAZID [Concomitant]
     Indication: ANTIBIOTIC PROPHYLAXIS
     Route: 048
     Dates: start: 20100602

REACTIONS (2)
  - AORTIC VALVE INCOMPETENCE [None]
  - HERPES ZOSTER [None]
